FAERS Safety Report 7019958-X (Version None)
Quarter: 2010Q3

REPORT INFORMATION
  Report Type: 
  Country: None (occurrence: None)
  Receive Date: 20100927
  Receipt Date: 20100920
  Transmission Date: 20110219
  Serious: Yes (Life-Threatening, Hospitalization)
  Sender: FDA-Public Use
  Company Number: 2010SP050488

PATIENT
  Age: 53 Year
  Sex: Female

DRUGS (2)
  1. PEG-INTRON [Suspect]
     Indication: HEPATITIS C
     Dosage: 150 MCG; QW; SC
     Route: 058
     Dates: start: 20100108, end: 20100901
  2. RIBASPHERE [Suspect]
     Indication: HEPATITIS C
     Dates: start: 20100108, end: 20100901

REACTIONS (3)
  - BRONCHIOLITIS [None]
  - DYSPNOEA [None]
  - PAIN [None]
